FAERS Safety Report 16316309 (Version 7)
Quarter: 2021Q2

REPORT INFORMATION
  Report Type: Report from Study
  Country: FR (occurrence: FR)
  Receive Date: 20190515
  Receipt Date: 20210506
  Transmission Date: 20210716
  Serious: Yes (Other)
  Sender: FDA-Public Use
  Company Number: FR-GILEAD-2019-0389817

PATIENT

DRUGS (1)
  1. BICTEGRAVIR W/EMTRICITABINE/TENOFOVIR ALAFENAMIDE [Suspect]
     Active Substance: BICTEGRAVIR\EMTRICITABINE\TENOFOVIR ALAFENAMIDE
     Indication: HIV INFECTION
     Dosage: UNK
     Route: 065
     Dates: start: 20190121

REACTIONS (41)
  - Psychotic disorder [Unknown]
  - Lipoatrophy [Not Recovered/Not Resolved]
  - Irritability [Not Recovered/Not Resolved]
  - Abdominal distension [Not Recovered/Not Resolved]
  - Somnolence [Not Recovered/Not Resolved]
  - Poor quality sleep [Unknown]
  - Disturbance in attention [Unknown]
  - Drug ineffective [Not Recovered/Not Resolved]
  - Product dose omission issue [Recovered/Resolved]
  - Suicidal ideation [Unknown]
  - Laziness [Not Recovered/Not Resolved]
  - Lipohypertrophy [Unknown]
  - Speech disorder [Not Recovered/Not Resolved]
  - Weight decreased [Unknown]
  - Unevaluable event [Not Recovered/Not Resolved]
  - Negative thoughts [Unknown]
  - Memory impairment [Unknown]
  - Medication error [Recovered/Resolved]
  - Intentional product misuse [Unknown]
  - Back pain [Not Recovered/Not Resolved]
  - Mental impairment [Not Recovered/Not Resolved]
  - Dizziness [Not Recovered/Not Resolved]
  - Depression [Not Recovered/Not Resolved]
  - Intentional product use issue [Not Recovered/Not Resolved]
  - Viral load increased [Recovered/Resolved]
  - Gastrointestinal sounds abnormal [Not Recovered/Not Resolved]
  - Thyroxine decreased [Recovered/Resolved]
  - Ill-defined disorder [Unknown]
  - Fatigue [Not Recovered/Not Resolved]
  - Therapy interrupted [Recovered/Resolved]
  - Coronary artery disease [Unknown]
  - Hepatic pain [Unknown]
  - Strabismus [Unknown]
  - Raynaud^s phenomenon [Unknown]
  - Gallbladder disorder [Unknown]
  - Left ventricular hypertrophy [Unknown]
  - Ill-defined disorder [Not Recovered/Not Resolved]
  - Fat tissue increased [Not Recovered/Not Resolved]
  - Myalgia [Not Recovered/Not Resolved]
  - Aggression [Not Recovered/Not Resolved]
  - Hypertension [Unknown]
